FAERS Safety Report 14835821 (Version 1)
Quarter: 2018Q2

REPORT INFORMATION
  Report Type: Spontaneous
  Country: BR (occurrence: BR)
  Receive Date: 20180502
  Receipt Date: 20180502
  Transmission Date: 20180711
  Serious: Yes (Hospitalization, Other)
  Sender: FDA-Public Use
  Company Number: BR-ASTRAZENECA-2018SE56069

PATIENT
  Sex: Male

DRUGS (1)
  1. GEFITINIB. [Suspect]
     Active Substance: GEFITINIB
     Route: 048
     Dates: start: 201802, end: 2018

REACTIONS (7)
  - Nausea [Recovered/Resolved]
  - Hepatic pain [Unknown]
  - Malaise [Recovered/Resolved]
  - Abdominal pain upper [Recovered/Resolved]
  - Hepatitis acute [Unknown]
  - Hepatic enzyme abnormal [Not Recovered/Not Resolved]
  - Vomiting [Recovered/Resolved]
